FAERS Safety Report 7724571-2 (Version None)
Quarter: 2011Q3

REPORT INFORMATION
  Report Type: 
  Country: None (occurrence: None)
  Receive Date: 20110829
  Receipt Date: 20110811
  Transmission Date: 20111222
  Serious: Yes (Death, Other)
  Sender: FDA-Public Use
  Company Number: 2011MA011714

PATIENT
  Age: 45 Year
  Sex: Male

DRUGS (3)
  1. ETHANOL [Suspect]
  2. OXYCODONE HCL [Suspect]
  3. COCAINE [Suspect]

REACTIONS (4)
  - DRUG ABUSE [None]
  - SUDDEN DEATH [None]
  - ACCIDENTAL DEATH [None]
  - TOXICITY TO VARIOUS AGENTS [None]
